FAERS Safety Report 5418648-4 (Version None)
Quarter: 2007Q3

REPORT INFORMATION
  Report Type: 
  Country: None (occurrence: None)
  Receive Date: 20070817
  Receipt Date: 20070727
  Transmission Date: 20080115
  Serious: Yes (Hospitalization, Disabling, Other)
  Sender: FDA-Public Use
  Company Number: US-PFIZER INC-2006093373

PATIENT
  Sex: Male

DRUGS (11)
  1. NEURONTIN [Suspect]
     Route: 048
  2. LYRICA [Suspect]
     Indication: PROCEDURAL PAIN
     Dates: start: 20060701, end: 20060704
  3. ALL OTHER THERAPEUTIC PRODUCTS [Concomitant]
  4. LEVOTHYROXINE SODIUM [Concomitant]
  5. SPIRONOLACTONE [Concomitant]
  6. CLONIDINE [Concomitant]
  7. LOVASTATIN [Concomitant]
  8. FUROSEMIDE [Concomitant]
  9. PAXIL [Concomitant]
  10. XANAX [Concomitant]
  11. INSULIN [Concomitant]

REACTIONS (44)
  - ABDOMINAL DISTENSION [None]
  - ACTIVITIES OF DAILY LIVING IMPAIRED [None]
  - ANGIOLIPOMA [None]
  - ANXIETY [None]
  - BLINDNESS [None]
  - BONE SARCOMA [None]
  - BUNDLE BRANCH BLOCK LEFT [None]
  - BUNDLE BRANCH BLOCK RIGHT [None]
  - CATARACT [None]
  - CELLULITIS [None]
  - COMPLEX REGIONAL PAIN SYNDROME [None]
  - DEPRESSION [None]
  - DIABETIC COMA [None]
  - DIABETIC RETINOPATHY [None]
  - DRUG HYPERSENSITIVITY [None]
  - DRUG INEFFECTIVE [None]
  - DRUG SCREEN FALSE POSITIVE [None]
  - EYE HAEMORRHAGE [None]
  - FALL [None]
  - FLUID RETENTION [None]
  - GINGIVITIS [None]
  - GLUCOSE TOLERANCE DECREASED [None]
  - HUMERUS FRACTURE [None]
  - HYPERLIPIDAEMIA [None]
  - LIPOMA [None]
  - NEPHROPATHY [None]
  - NEUROPATHY PERIPHERAL [None]
  - NEUROSIS [None]
  - OPTIC NERVE INJURY [None]
  - ORAL MUCOSAL BLISTERING [None]
  - PANIC ATTACK [None]
  - PERIPHERAL VASCULAR DISORDER [None]
  - PNEUMONIA BACTERIAL [None]
  - PNEUMONIA VIRAL [None]
  - RETINAL DETACHMENT [None]
  - RETINAL VASCULAR DISORDER [None]
  - RHEUMATOID ARTHRITIS [None]
  - ROTATOR CUFF SYNDROME [None]
  - SLEEP APNOEA SYNDROME [None]
  - SUBCUTANEOUS NODULE [None]
  - SYNOVIAL RUPTURE [None]
  - TOOTH LOSS [None]
  - VISION BLURRED [None]
  - VITREOUS HAEMORRHAGE [None]
